FAERS Safety Report 4821937-5 (Version None)
Quarter: 2005Q4

REPORT INFORMATION
  Report Type: 
  Country: None (occurrence: None)
  Receive Date: 20051107
  Receipt Date: 20051031
  Transmission Date: 20060501
  Serious: Yes (Death, Life-Threatening, Hospitalization, Other)
  Sender: FDA-Public Use
  Company Number: PHHO2005JP17186

PATIENT
  Age: 91 Year
  Sex: Female

DRUGS (5)
  1. DIOVAN [Suspect]
     Indication: HYPERTENSION
     Dosage: 80 MG, QD
     Route: 048
     Dates: start: 20030328, end: 20031111
  2. DIOVAN [Suspect]
     Dosage: NO TREATMENT
     Dates: start: 20031112, end: 20040119
  3. DIOVAN [Suspect]
     Dosage: 80 MG, QD
     Route: 048
     Dates: start: 20040120, end: 20050620
  4. ADALAT [Concomitant]
     Indication: HYPERTENSION
  5. BLOPRESS [Concomitant]
     Indication: HYPERTENSION

REACTIONS (26)
  - ANXIETY [None]
  - BLOOD CHOLINESTERASE DECREASED [None]
  - BRADYCARDIA [None]
  - BRONCHITIS ACUTE [None]
  - BUNDLE BRANCH BLOCK RIGHT [None]
  - CONCOMITANT DISEASE PROGRESSION [None]
  - CONVULSION [None]
  - DEAFNESS [None]
  - DEHYDRATION [None]
  - DEPRESSIVE SYMPTOM [None]
  - ELECTROCARDIOGRAM QRS COMPLEX PROLONGED [None]
  - GENERALISED OEDEMA [None]
  - HYPERTENSION [None]
  - HYPONATRAEMIA [None]
  - IRRITABILITY [None]
  - LIVER DISORDER [None]
  - MALAISE [None]
  - OEDEMA PERIPHERAL [None]
  - PLEURAL EFFUSION [None]
  - PULMONARY CONGESTION [None]
  - PYURIA [None]
  - RENAL IMPAIRMENT [None]
  - RENIN INCREASED [None]
  - RESPIRATORY DISORDER [None]
  - SUICIDE ATTEMPT [None]
  - URETHRAL PAIN [None]
